FAERS Safety Report 6369277-X (Version None)
Quarter: 2009Q3

REPORT INFORMATION
  Report Type: 
  Country: None (occurrence: None)
  Receive Date: 20090916
  Receipt Date: 20090911
  Transmission Date: 20100115
  Serious: Yes (Death, Other)
  Sender: FDA-Public Use
  Company Number: 2009SP024151

PATIENT
  Age: 73 Year
  Sex: Female

DRUGS (2)
  1. DANAPAROID SODIUM (S-P) (DANAPAROID SODIUM) [Suspect]
     Indication: HEPARIN-INDUCED THROMBOCYTOPENIA
     Dosage: 2250 IU;ONCE;IV; 280 IU;QH
     Route: 042
  2. HEPARIN [Suspect]
     Indication: CARDIOPULMONARY BYPASS

REACTIONS (3)
  - ARTERIAL THROMBOSIS [None]
  - HEPARIN-INDUCED THROMBOCYTOPENIA [None]
  - PULMONARY EMBOLISM [None]
